FAERS Safety Report 17472514 (Version 1)
Quarter: 2020Q1

REPORT INFORMATION
  Report Type: Spontaneous
  Country: ES (occurrence: ES)
  Receive Date: 20200228
  Receipt Date: 20200228
  Transmission Date: 20200409
  Serious: Yes (Death)
  Sender: FDA-Public Use
  Company Number: ES-ROCHE-2555116

PATIENT
  Sex: Female

DRUGS (2)
  1. HIDROFEROL [Suspect]
     Active Substance: CALCIFEDIOL
     Indication: PRODUCT USED FOR UNKNOWN INDICATION
     Route: 064
     Dates: start: 20190101, end: 20190828
  2. OCREVUS [Suspect]
     Active Substance: OCRELIZUMAB
     Indication: PRODUCT USED FOR UNKNOWN INDICATION
     Route: 064
     Dates: start: 20170228, end: 20190628

REACTIONS (4)
  - Eyelid disorder [Unknown]
  - Heart rate decreased [Unknown]
  - Premature baby [Fatal]
  - Foetal exposure during pregnancy [Unknown]
